FAERS Safety Report 25061323 (Version 1)
Quarter: 2025Q1

REPORT INFORMATION
  Report Type: Spontaneous
  Country: US (occurrence: US)
  Receive Date: 20250311
  Receipt Date: 20250311
  Transmission Date: 20250409
  Serious: Yes (Other)
  Sender: NOVITIUM PHARMA
  Company Number: US-NOVITIUMPHARMA-2025USNVP00579

PATIENT
  Age: 53 Year
  Sex: Male

DRUGS (14)
  1. SULFAMETHOXAZOLE\TRIMETHOPRIM [Suspect]
     Active Substance: SULFAMETHOXAZOLE\TRIMETHOPRIM
     Indication: Antibiotic prophylaxis
     Dates: start: 2022
  2. THYMOCYTE IMMUNE GLOBULIN NOS [Concomitant]
     Active Substance: THYMOCYTE IMMUNE GLOBULIN NOS
     Indication: Immunosuppressant drug therapy
     Dates: start: 2022
  3. THYMOCYTE IMMUNE GLOBULIN NOS [Concomitant]
     Active Substance: THYMOCYTE IMMUNE GLOBULIN NOS
     Dates: start: 2022
  4. METHYLPREDNISOLONE [Concomitant]
     Active Substance: METHYLPREDNISOLONE
     Indication: Immunosuppressant drug therapy
     Route: 042
     Dates: start: 2022
  5. TACROLIMUS [Concomitant]
     Active Substance: TACROLIMUS
     Indication: Prophylaxis
  6. MYCOPHENOLATE MOFETIL [Concomitant]
     Active Substance: MYCOPHENOLATE MOFETIL
     Indication: Prophylaxis
     Dates: start: 2022
  7. VALGANCICLOVIR [Concomitant]
     Active Substance: VALGANCICLOVIR
     Indication: Antiviral prophylaxis
     Dates: start: 2022
  8. VANCOMYCIN [Concomitant]
     Active Substance: VANCOMYCIN
     Indication: Evidence based treatment
     Dates: start: 20221013
  9. CEFEPIME [Concomitant]
     Active Substance: CEFEPIME HYDROCHLORIDE
     Indication: Evidence based treatment
     Dates: start: 20221013
  10. TECOVIRIMAT [Concomitant]
     Active Substance: TECOVIRIMAT
     Indication: Monkeypox
     Route: 042
     Dates: start: 20221013
  11. NOREPINEPHRINE [Concomitant]
     Active Substance: NOREPINEPHRINE
     Indication: Hypotension
     Dates: start: 20221014
  12. VASOPRESSIN [Concomitant]
     Active Substance: VASOPRESSIN
     Indication: Hypotension
     Dates: start: 20221014
  13. HYDROCORTISONE [Concomitant]
     Active Substance: HYDROCORTISONE
     Indication: Monkeypox
     Route: 042
     Dates: start: 20221014
  14. CIDOFOVIR [Concomitant]
     Active Substance: CIDOFOVIR
     Indication: Monkeypox
     Route: 042
     Dates: start: 20221014

REACTIONS (3)
  - Bacteraemia [Unknown]
  - Urinary tract infection [Unknown]
  - Drug ineffective [Unknown]
